FAERS Safety Report 12836643 (Version 1)
Quarter: 2016Q4

REPORT INFORMATION
  Report Type: Spontaneous
  Country: US (occurrence: US)
  Receive Date: 20161011
  Receipt Date: 20161011
  Transmission Date: 20170207
  Serious: No
  Sender: FDA-Public Use
  Company Number: None

PATIENT
  Age: 76 Year
  Sex: Female
  Weight: 68.04 kg

DRUGS (9)
  1. XARELTO [Suspect]
     Active Substance: RIVAROXABAN
     Indication: ANTICOAGULANT THERAPY
     Dosage: 1 PILL DAILY ORAL
     Route: 048
     Dates: start: 20160907, end: 20160916
  2. XARELTO [Suspect]
     Active Substance: RIVAROXABAN
     Indication: CEREBROVASCULAR ACCIDENT
     Dosage: 1 PILL DAILY ORAL
     Route: 048
     Dates: start: 20160907, end: 20160916
  3. LORAZEPAM. [Concomitant]
     Active Substance: LORAZEPAM
  4. ASPIRIN. [Concomitant]
     Active Substance: ASPIRIN
  5. PACE MAKER [Concomitant]
  6. FUROSEMIDE. [Concomitant]
     Active Substance: FUROSEMIDE
  7. FIBULATOR [Concomitant]
  8. SPIROLACTONE [Concomitant]
     Active Substance: SPIRONOLACTONE
  9. CARVEDILOL. [Concomitant]
     Active Substance: CARVEDILOL

REACTIONS (7)
  - Paraesthesia [None]
  - Muscle spasms [None]
  - Headache [None]
  - Feeling abnormal [None]
  - Rash [None]
  - Dyspnoea [None]
  - Insomnia [None]
